FAERS Safety Report 7332447-8 (Version None)
Quarter: 2011Q1

REPORT INFORMATION
  Report Type: 
  Country: None (occurrence: None)
  Receive Date: 20110304
  Receipt Date: 20110228
  Transmission Date: 20110831
  Serious: Yes (Other)
  Sender: FDA-Public Use
  Company Number: US-PFIZER INC-2005104601

PATIENT
  Sex: Female

DRUGS (2)
  1. NEURONTIN [Suspect]
     Dosage: 100 MG, UNK
     Dates: start: 20030916
  2. NEURONTIN [Suspect]
     Indication: PAIN
     Dosage: 300 MG, UNK
     Dates: start: 20000606

REACTIONS (7)
  - COGNITIVE DISORDER [None]
  - DISTURBANCE IN ATTENTION [None]
  - INTENTIONAL SELF-INJURY [None]
  - SUICIDE ATTEMPT [None]
  - THINKING ABNORMAL [None]
  - AGITATION [None]
  - DRUG INEFFECTIVE [None]
